FAERS Safety Report 5591024-X (Version None)
Quarter: 2008Q1

REPORT INFORMATION
  Report Type: 
  Country: None (occurrence: None)
  Receive Date: 20080111
  Receipt Date: 20080111
  Transmission Date: 20080703
  Serious: Yes (Hospitalization)
  Sender: FDA-Public Use
  Company Number: None

PATIENT
  Age: 54 Year
  Sex: Female
  Weight: 43.5453 kg

DRUGS (5)
  1. MYFORTIC [Suspect]
     Indication: IMMUNOSUPPRESSION
     Dosage: 720 MG
     Dates: start: 20070718, end: 20071130
  2. RAPAMUNE [Suspect]
     Indication: IMMUNOSUPPRESSION
     Dosage: 3 MG
     Dates: start: 20071026, end: 20071130
  3. PROGRAF [Concomitant]
  4. BACTRIM [Concomitant]
  5. LASIX [Concomitant]

REACTIONS (2)
  - INFECTION [None]
  - KIDNEY TRANSPLANT REJECTION [None]
